FAERS Safety Report 7203368-6 (Version None)
Quarter: 2010Q4

REPORT INFORMATION
  Report Type: 
  Country: None (occurrence: None)
  Receive Date: 20101216
  Receipt Date: 20101206
  Transmission Date: 20110411
  Serious: Yes (Hospitalization)
  Sender: FDA-Public Use
  Company Number: 2010MA005085

PATIENT
  Age: 82 Year
  Sex: Female

DRUGS (5)
  1. GABAPENTIN [Suspect]
     Indication: NEURALGIA
     Dosage: 400 MG; ; PO
     Route: 048
  2. OXYCODONE [Concomitant]
  3. METFORMIN [Concomitant]
  4. PARACETAMOL [Concomitant]
  5. ACETYLSALICYLIC ACID SRT [Concomitant]

REACTIONS (1)
  - NEUTROPHIL COUNT DECREASED [None]
